FAERS Safety Report 20236085 (Version 3)
Quarter: 2022Q1

REPORT INFORMATION
  Report Type: Report from Study
  Country: US (occurrence: US)
  Receive Date: 20211228
  Receipt Date: 20220105
  Transmission Date: 20220423
  Serious: Yes (Life-Threatening, Hospitalization, Other)
  Sender: FDA-Public Use
  Company Number: US-BRISTOL-MYERS SQUIBB COMPANY-BMS-2021-139973

PATIENT
  Age: 53 Year
  Sex: Male
  Weight: 106.9 kg

DRUGS (4)
  1. NIVOLUMAB [Suspect]
     Active Substance: NIVOLUMAB
     Indication: Glioblastoma multiforme
     Dosage: UNK
     Route: 065
     Dates: start: 20210902
  2. NIVOLUMAB [Suspect]
     Active Substance: NIVOLUMAB
     Dosage: 1546 MILLIGRAM
     Route: 065
     Dates: start: 20211028
  3. IPILIMUMAB [Suspect]
     Active Substance: IPILIMUMAB
     Indication: Glioblastoma multiforme
     Dosage: UNK
     Route: 065
     Dates: start: 20210902
  4. IPILIMUMAB [Suspect]
     Active Substance: IPILIMUMAB
     Dosage: 311 MILLIGRAM
     Route: 065
     Dates: start: 20211028

REACTIONS (8)
  - Hypotension [Recovering/Resolving]
  - Autonomic nervous system imbalance [Unknown]
  - Diarrhoea [Recovering/Resolving]
  - Hyperthyroidism [Unknown]
  - Hyponatraemia [Recovering/Resolving]
  - Ileus [Recovering/Resolving]
  - Vomiting [Recovering/Resolving]
  - Autoimmune disorder [Unknown]

NARRATIVE: CASE EVENT DATE: 20211111
